FAERS Safety Report 22061517 (Version 3)
Quarter: 2024Q1

REPORT INFORMATION
  Report Type: Report from Study
  Country: US (occurrence: US)
  Receive Date: 20230304
  Receipt Date: 20240202
  Transmission Date: 20240409
  Serious: Yes (Other)
  Sender: FDA-Public Use
  Company Number: US-002147023-NVSC2023US048102

PATIENT
  Age: 25 Year
  Sex: Female

DRUGS (1)
  1. TEGRETOL [Suspect]
     Active Substance: CARBAMAZEPINE
     Indication: Seizure
     Dosage: UNK
     Route: 048

REACTIONS (4)
  - Cerebrovascular accident [Unknown]
  - Seizure [Unknown]
  - Adverse drug reaction [Unknown]
  - Product substitution issue [Unknown]

NARRATIVE: CASE EVENT DATE: 20110406
